FAERS Safety Report 6897986-2 (Version None)
Quarter: 2010Q3

REPORT INFORMATION
  Report Type: 
  Country: None (occurrence: None)
  Receive Date: 20100802
  Receipt Date: 20070824
  Transmission Date: 20110219
  Serious: No
  Sender: FDA-Public Use
  Company Number: US-PFIZER INC-2007071278

PATIENT
  Age: 48 Year
  Sex: Female

DRUGS (11)
  1. LYRICA [Suspect]
     Indication: FIBROMYALGIA
     Dates: start: 20051208, end: 20070410
  2. LYRICA [Suspect]
     Indication: FATIGUE
  3. CAPTOPRIL [Concomitant]
  4. HYDROCHLOROTHIAZIDE [Concomitant]
  5. TOPROL-XL [Concomitant]
  6. ACETYLSALICYLIC ACID SRT [Concomitant]
  7. NEXIUM [Concomitant]
  8. TRAZODONE [Concomitant]
  9. MONTELUKAST SODIUM [Concomitant]
  10. SKELAXIN [Concomitant]
  11. EFFEXOR [Concomitant]

REACTIONS (1)
  - VISION BLURRED [None]
